FAERS Safety Report 18040326 (Version 2)
Quarter: 2020Q4

REPORT INFORMATION
  Report Type: Spontaneous
  Country: US (occurrence: US)
  Receive Date: 20200717
  Receipt Date: 20201002
  Transmission Date: 20210113
  Serious: Yes (Other)
  Sender: FDA-Public Use
  Company Number: US-PROCTER_AND_GAMBLE-GS20084936

PATIENT
  Sex: Male
  Weight: 97.51 kg

DRUGS (6)
  1. AVONEX [Concomitant]
     Active Substance: INTERFERON BETA-1A
     Dosage: 3MG/0.5ML 1 /WEEK
     Route: 050
  2. METAMUCIL THERAPY FOR REGULARITY [Suspect]
     Active Substance: PSYLLIUM HUSK
     Indication: CONSTIPATION
     Dosage: 1-2 TABLESPOONS OF POWDER IN THE MORNING AS WELL AS AT NIGHT
     Route: 048
     Dates: start: 1980
  3. METAMUCIL THERAPY FOR REGULARITY [Suspect]
     Active Substance: PSYLLIUM HUSK
     Indication: CHOLECYSTECTOMY
  4. CHOLESTYRAMINE. [Concomitant]
     Active Substance: CHOLESTYRAMINE
  5. MEDICATIONS [Concomitant]
     Active Substance: UNSPECIFIED INGREDIENT
  6. METAMUCIL THERAPY FOR REGULARITY [Suspect]
     Active Substance: PSYLLIUM HUSK
     Indication: DIARRHOEA
     Dosage: THREE TABLESPOONS OF POWDER IN THE MORNING AS WELL AS AT NIGHT
     Route: 048
     Dates: start: 1980

REACTIONS (6)
  - Colon cancer [Not Recovered/Not Resolved]
  - Overdose [Unknown]
  - Abdominal pain upper [Recovered/Resolved]
  - Exposure via ingestion [Not Recovered/Not Resolved]
  - Product container seal issue [Unknown]
  - Accidental exposure to product packaging [Not Recovered/Not Resolved]

NARRATIVE: CASE EVENT DATE: 1996
